FAERS Safety Report 22073401 (Version 5)
Quarter: 2023Q2

REPORT INFORMATION
  Report Type: Report from Study
  Country: IT (occurrence: IT)
  Receive Date: 20230308
  Receipt Date: 20230413
  Transmission Date: 20230721
  Serious: Yes (Hospitalization, Other)
  Sender: FDA-Public Use
  Company Number: IT-GLAXOSMITHKLINE-IT2023GSK033621

PATIENT

DRUGS (7)
  1. NIRAPARIB [Suspect]
     Active Substance: NIRAPARIB
     Indication: Ovarian cancer
     Dosage: 300 MG, Z-OS
     Route: 048
     Dates: start: 20221227, end: 20230120
  2. NIRAPARIB [Suspect]
     Active Substance: NIRAPARIB
     Indication: Fallopian tube cancer
     Dosage: 200 MG, QD
     Route: 048
     Dates: start: 20230131, end: 20230220
  3. NIRAPARIB [Suspect]
     Active Substance: NIRAPARIB
     Indication: Peritoneal neoplasm
     Dosage: 300 MG, QD
     Route: 048
     Dates: start: 20230201, end: 20230220
  4. FUROSEMIDE [Concomitant]
     Active Substance: FUROSEMIDE
     Indication: Hypertension
     Dosage: UNK
     Route: 048
  5. METFORMIN [Concomitant]
     Active Substance: METFORMIN HYDROCHLORIDE
     Indication: Diabetes mellitus
     Dosage: UNK
     Route: 048
  6. PAROXETINE [Concomitant]
     Active Substance: PAROXETINE
     Indication: Anxiety disorder
     Dosage: UNK
     Route: 048
  7. ATENOLOL [Concomitant]
     Active Substance: ATENOLOL
     Indication: Hypertension
     Dosage: UNK
     Route: 048

REACTIONS (6)
  - Thrombocytopenia [Recovered/Resolved]
  - Hepatitis [Recovered/Resolved with Sequelae]
  - Anaemia [Recovered/Resolved]
  - Thrombocytopenia [Recovered/Resolved]
  - General physical health deterioration [Recovered/Resolved with Sequelae]
  - Condition aggravated [Recovered/Resolved with Sequelae]

NARRATIVE: CASE EVENT DATE: 20230120
